FAERS Safety Report 8214904-5 (Version None)
Quarter: 2012Q1

REPORT INFORMATION
  Report Type: 
  Country: None (occurrence: None)
  Receive Date: 20120316
  Receipt Date: 20120307
  Transmission Date: 20120608
  Serious: Yes (Hospitalization, Other)
  Sender: FDA-Public Use
  Company Number: US-JNJFOC-20120305298

PATIENT
  Age: 53 Year
  Sex: Female

DRUGS (2)
  1. INVEGA SUSTENNA [Suspect]
     Indication: SCHIZOPHRENIA
     Route: 030
     Dates: start: 20110101, end: 20111101
  2. INVEGA [Suspect]
     Indication: SCHIZOPHRENIA
     Route: 048
     Dates: start: 20111101, end: 20120101

REACTIONS (10)
  - DISORIENTATION [None]
  - MENTAL STATUS CHANGES [None]
  - CONDITION AGGRAVATED [None]
  - LETHARGY [None]
  - ADVERSE DRUG REACTION [None]
  - BLOOD GLUCOSE INCREASED [None]
  - CONFUSIONAL STATE [None]
  - TREATMENT NONCOMPLIANCE [None]
  - BLOOD SODIUM ABNORMAL [None]
  - ASTHENIA [None]
